FAERS Safety Report 18105569 (Version 1)
Quarter: 2020Q3

REPORT INFORMATION
  Report Type: Spontaneous
  Country: CN (occurrence: CN)
  Receive Date: 20200803
  Receipt Date: 20200803
  Transmission Date: 20201103
  Serious: Yes (Life-Threatening)
  Sender: FDA-Public Use
  Company Number: CN-IGSA-BIG0010842

PATIENT
  Age: 73 Year
  Sex: Male
  Weight: 40 kg

DRUGS (2)
  1. ALBUTEIN [Suspect]
     Active Substance: ALBUMIN HUMAN
     Indication: HYPOPROTEINAEMIA
     Dosage: 10 GRAM, QD
     Route: 041
     Dates: start: 20200702, end: 20200702
  2. ALBUTEIN [Suspect]
     Active Substance: ALBUMIN HUMAN
     Dosage: 10 GRAM, QD
     Dates: start: 20200629, end: 20200702

REACTIONS (3)
  - Chest discomfort [Recovered/Resolved]
  - Hypotension [Recovered/Resolved]
  - Dizziness [Recovered/Resolved]

NARRATIVE: CASE EVENT DATE: 20200702
